FAERS Safety Report 10068755 (Version 1)
Quarter: 2014Q2

REPORT INFORMATION
  Report Type: Spontaneous
  Country: US (occurrence: US)
  Receive Date: 20140409
  Receipt Date: 20140409
  Transmission Date: 20141212
  Serious: No
  Sender: FDA-Public Use
  Company Number: US-TEVA-474496USA

PATIENT
  Sex: Female
  Weight: 72.64 kg

DRUGS (2)
  1. PARAGARD 380A [Suspect]
     Indication: CONTRACEPTION
     Route: 015
  2. IBUPROFEN [Concomitant]
     Indication: DYSMENORRHOEA

REACTIONS (2)
  - Device breakage [Recovered/Resolved]
  - Dysmenorrhoea [Not Recovered/Not Resolved]
